FAERS Safety Report 12432745 (Version 2)
Quarter: 2016Q2

REPORT INFORMATION
  Report Type: Spontaneous
  Country: US (occurrence: US)
  Receive Date: 20160603
  Receipt Date: 20160603
  Transmission Date: 20160815
  Serious: Yes (Other)
  Sender: FDA-Public Use
  Company Number: US-CIPLA LTD.-2016US06339

PATIENT

DRUGS (8)
  1. SERTRALINE [Suspect]
     Active Substance: SERTRALINE HYDROCHLORIDE
     Indication: ANXIETY
     Dosage: UNK
     Route: 065
  2. SERTRALINE [Interacting]
     Active Substance: SERTRALINE HYDROCHLORIDE
     Indication: DEPRESSION
  3. VENLAFAXINE [Interacting]
     Active Substance: VENLAFAXINE HYDROCHLORIDE
     Dosage: 75 MG/DAY
     Route: 065
  4. TEMAZEPAM. [Interacting]
     Active Substance: TEMAZEPAM
     Indication: ANXIETY
     Dosage: UNK
     Route: 065
  5. TEMAZEPAM. [Interacting]
     Active Substance: TEMAZEPAM
     Indication: DEPRESSION
  6. VENLAFAXINE [Interacting]
     Active Substance: VENLAFAXINE HYDROCHLORIDE
     Dosage: 150 MG/DAY, RESUMED PRESCRIBED DOSAGE
     Route: 065
  7. QUETIAPINE. [Interacting]
     Active Substance: QUETIAPINE
     Indication: INSOMNIA
     Dosage: UNK
     Route: 065
  8. VENLAFAXINE [Interacting]
     Active Substance: VENLAFAXINE HYDROCHLORIDE
     Dosage: 150 MG/DAY, 2 TO 4 TIMES THE RECOMMENDED STARTING DOSE
     Route: 065

REACTIONS (14)
  - Panic attack [Unknown]
  - Mood swings [Unknown]
  - Physical assault [Unknown]
  - Abnormal behaviour [Unknown]
  - Akathisia [Unknown]
  - Drug interaction [Unknown]
  - Toxicity to various agents [Unknown]
  - Thinking abnormal [Unknown]
  - Delusion [Unknown]
  - Homicide [Unknown]
  - Suicidal ideation [Unknown]
  - Depressed mood [Unknown]
  - Drug withdrawal syndrome [Unknown]
  - Fatigue [Unknown]
